FAERS Safety Report 7044033-8 (Version None)
Quarter: 2010Q4

REPORT INFORMATION
  Report Type: 
  Country: None (occurrence: None)
  Receive Date: 20101013
  Receipt Date: 20101013
  Transmission Date: 20110411
  Serious: Yes (Hospitalization)
  Sender: FDA-Public Use
  Company Number: None

PATIENT
  Age: 65 Year
  Sex: Female
  Weight: 49.9 kg

DRUGS (12)
  1. DENILEUKIN DIFTITOX -ONTAK- 150MCG/ML EISAI [Suspect]
     Indication: ADULT T-CELL LYMPHOMA/LEUKAEMIA
     Dosage: 18MCG/KG DOSE- 812MCG- X 5 DAYS IV DRIP
     Route: 041
     Dates: start: 20100920, end: 20100924
  2. ONTAK [Suspect]
  3. BENADRYL [Concomitant]
  4. ACETAMINOPHEN [Concomitant]
  5. OMEPRAZOLE [Concomitant]
  6. COLACE [Concomitant]
  7. ALBUTEROL INHALER [Concomitant]
  8. VALGANCICLOVIR HCL [Concomitant]
  9. ATOVAQUIONE [Concomitant]
  10. MEGESTROL ACETATE [Concomitant]
  11. FLUCONAZOLE [Concomitant]
  12. DYCLONINE [Concomitant]

REACTIONS (11)
  - ASTHENIA [None]
  - BLOOD ALKALINE PHOSPHATASE INCREASED [None]
  - BLOOD BILIRUBIN INCREASED [None]
  - DRUG TOXICITY [None]
  - FATIGUE [None]
  - INFECTION [None]
  - METASTASES TO LIVER [None]
  - NEUTROPHIL COUNT DECREASED [None]
  - PYREXIA [None]
  - RASH GENERALISED [None]
  - WHITE BLOOD CELL COUNT DECREASED [None]
